FAERS Safety Report 4576764-3 (Version None)
Quarter: 2005Q1

REPORT INFORMATION
  Report Type: 
  Country: None (occurrence: None)
  Receive Date: 20050207
  Receipt Date: 20050126
  Transmission Date: 20050727
  Serious: Yes (Other)
  Sender: FDA-Public Use
  Company Number: 2005020480

PATIENT
  Sex: Male
  Weight: 90.7194 kg

DRUGS (2)
  1. UNISOM [Suspect]
     Indication: SLEEP DISORDER
     Dosage: ONE TABLET ONCE, ORAL
     Route: 048
     Dates: start: 20040501, end: 20040501
  2. ACETYLSALICYLIC ACID SRT [Concomitant]

REACTIONS (4)
  - CONCUSSION [None]
  - FATIGUE [None]
  - ROAD TRAFFIC ACCIDENT [None]
  - SOMNOLENCE [None]
